FAERS Safety Report 25044397 (Version 3)
Quarter: 2025Q3

REPORT INFORMATION
  Report Type: Report from Study
  Country: US (occurrence: US)
  Receive Date: 20250306
  Receipt Date: 20250809
  Transmission Date: 20251020
  Serious: Yes (Hospitalization)
  Sender: ALEXION PHARMACEUTICALS
  Company Number: US-ASTRAZENECA-202502USA025822US

PATIENT
  Sex: Male

DRUGS (1)
  1. BENRALIZUMAB [Suspect]
     Active Substance: BENRALIZUMAB
     Indication: Asthma
     Dosage: 30 MILLIGRAM, Q8W
     Dates: start: 20241130

REACTIONS (6)
  - Chest discomfort [Unknown]
  - Rash [Recovering/Resolving]
  - Oral mucosal blistering [Recovering/Resolving]
  - Productive cough [Unknown]
  - Secretion discharge [Unknown]
  - Drug ineffective [Unknown]
